FAERS Safety Report 25392779 (Version 3)
Quarter: 2025Q3

REPORT INFORMATION
  Report Type: Report from Study
  Country: US (occurrence: US)
  Receive Date: 20250603
  Receipt Date: 20250701
  Transmission Date: 20251021
  Serious: No
  Sender: MALLINCKRODT
  Company Number: US-MALLINCKRODT-MNK202503072

PATIENT
  Age: 33 Year
  Sex: Female

DRUGS (3)
  1. CORTICOTROPIN [Suspect]
     Active Substance: CORTICOTROPIN
     Indication: Systemic lupus erythematosus
     Route: 058
     Dates: start: 20250518
  2. EMGALITY [Concomitant]
     Active Substance: GALCANEZUMAB-GNLM
  3. SAPHNELO [Concomitant]
     Active Substance: ANIFROLUMAB-FNIA

REACTIONS (8)
  - Adverse event [Unknown]
  - Amenorrhoea [Unknown]
  - Discomfort [Recovering/Resolving]
  - Limb discomfort [Recovering/Resolving]
  - Abnormal clotting factor [Unknown]
  - Fatigue [Unknown]
  - Asthenia [Unknown]
  - Nasopharyngitis [Unknown]

NARRATIVE: CASE EVENT DATE: 20250101
